FAERS Safety Report 13553374 (Version 9)
Quarter: 2018Q1

REPORT INFORMATION
  Report Type: Report from Study
  Country: None (occurrence: US)
  Receive Date: 20170517
  Receipt Date: 20180306
  Transmission Date: 20180508
  Serious: Yes (Death, Life-Threatening, Hospitalization, Other)
  Sender: FDA-Public Use
  Company Number: US-ABBVIE-17K-163-1976456-00

PATIENT
  Age: 53 Year
  Sex: Female
  Weight: 49.03 kg

DRUGS (6)
  1. OXYCODONE [Concomitant]
     Active Substance: OXYCODONE
     Indication: PRODUCT USED FOR UNKNOWN INDICATION
  2. HUMIRA [Suspect]
     Active Substance: ADALIMUMAB
     Route: 058
     Dates: start: 20180213
  3. FENTANYL. [Concomitant]
     Active Substance: FENTANYL
     Indication: PRODUCT USED FOR UNKNOWN INDICATION
  4. POTASSIUM [Suspect]
     Active Substance: POTASSIUM
     Indication: PRODUCT USED FOR UNKNOWN INDICATION
     Route: 048
  5. HUMIRA [Suspect]
     Active Substance: ADALIMUMAB
     Indication: RHEUMATOID ARTHRITIS
     Route: 058
     Dates: start: 2011, end: 2013
  6. HUMIRA [Suspect]
     Active Substance: ADALIMUMAB
     Indication: CROHN^S DISEASE
     Route: 058
     Dates: start: 201501, end: 201802

REACTIONS (32)
  - Rheumatoid lung [Not Recovered/Not Resolved]
  - Head injury [Unknown]
  - Dizziness [Unknown]
  - Lung infection [Unknown]
  - Death [Fatal]
  - Choking [Recovered/Resolved]
  - Traumatic intracranial haemorrhage [Unknown]
  - General physical health deterioration [Not Recovered/Not Resolved]
  - Blood potassium decreased [Recovered/Resolved]
  - Dysphagia [Not Recovered/Not Resolved]
  - Malaise [Recovered/Resolved]
  - Blood pressure abnormal [Unknown]
  - Lung neoplasm malignant [Not Recovered/Not Resolved]
  - Weaning failure [Not Recovered/Not Resolved]
  - Musculoskeletal stiffness [Not Recovered/Not Resolved]
  - Femur fracture [Recovered/Resolved]
  - Crohn^s disease [Recovering/Resolving]
  - Fall [Unknown]
  - Anxiety [Recovering/Resolving]
  - Chronic obstructive pulmonary disease [Recovered/Resolved]
  - Pneumonia legionella [Recovered/Resolved]
  - Weight decreased [Not Recovered/Not Resolved]
  - Depression [Recovering/Resolving]
  - Joint injury [Not Recovered/Not Resolved]
  - Cardio-respiratory arrest [Recovered/Resolved]
  - Hospitalisation [Unknown]
  - Pneumonia [Unknown]
  - Throat irritation [Recovering/Resolving]
  - Fall [Not Recovered/Not Resolved]
  - Bone disorder [Unknown]
  - Dysphonia [Recovering/Resolving]
  - Nausea [Unknown]

NARRATIVE: CASE EVENT DATE: 2014
